FAERS Safety Report 8471005-9 (Version None)
Quarter: 2012Q2

REPORT INFORMATION
  Report Type: 
  Country: None (occurrence: None)
  Receive Date: 20120627
  Receipt Date: 20120612
  Transmission Date: 20120825
  Serious: Yes (Other)
  Sender: FDA-Public Use
  Company Number: US-ELI_LILLY_AND_COMPANY-US201206004552

PATIENT
  Sex: Female

DRUGS (1)
  1. CYMBALTA [Suspect]
     Dosage: UNK, UNKNOWN
     Route: 065

REACTIONS (28)
  - BIPOLAR DISORDER [None]
  - RASH PRURITIC [None]
  - PARAESTHESIA ORAL [None]
  - PAIN [None]
  - AMNESIA [None]
  - ABDOMINAL PAIN [None]
  - HYPOAESTHESIA ORAL [None]
  - ALOPECIA [None]
  - DRY MOUTH [None]
  - TINNITUS [None]
  - VIOLENCE-RELATED SYMPTOM [None]
  - MOOD SWINGS [None]
  - PARAESTHESIA [None]
  - VERTIGO [None]
  - ANXIETY [None]
  - PSYCHOMOTOR SKILLS IMPAIRED [None]
  - ANGER [None]
  - BRUXISM [None]
  - HYPOAESTHESIA [None]
  - VISION BLURRED [None]
  - PALPITATIONS [None]
  - NERVOUSNESS [None]
  - ASTHENIA [None]
  - TREMOR [None]
  - FEELING ABNORMAL [None]
  - CHEST PAIN [None]
  - PAROSMIA [None]
  - WEIGHT INCREASED [None]
